FAERS Safety Report 17377142 (Version 1)
Quarter: 2020Q1

REPORT INFORMATION
  Report Type: Spontaneous
  Country: US (occurrence: US)
  Receive Date: 20200206
  Receipt Date: 20200206
  Transmission Date: 20200409
  Serious: Yes (Hospitalization, Other)
  Sender: FDA-Public Use
  Company Number: US-SCIEGEN PHARMACEUTICALS INC-2020SCILIT00028

PATIENT
  Age: 67 Year
  Sex: Male

DRUGS (4)
  1. HALOPERIDOL. [Suspect]
     Active Substance: HALOPERIDOL
  2. HYDROMORPHONE [Concomitant]
     Active Substance: HYDROMORPHONE
  3. QUETIAPINE. [Suspect]
     Active Substance: QUETIAPINE
  4. MIDAZOLAM HYDROCHLORIDE. [Concomitant]
     Active Substance: MIDAZOLAM HYDROCHLORIDE

REACTIONS (3)
  - Delirium [Unknown]
  - Condition aggravated [Unknown]
  - Parkinsonism [Recovered/Resolved]
